FAERS Safety Report 18275194 (Version 1)
Quarter: 2020Q3

REPORT INFORMATION
  Report Type: Spontaneous
  Country: FR (occurrence: FR)
  Receive Date: 20200916
  Receipt Date: 20200916
  Transmission Date: 20201103
  Serious: Yes (Other)
  Sender: FDA-Public Use
  Company Number: FR-ENDO PHARMACEUTICALS INC-2020-006193

PATIENT
  Age: 78 Year
  Sex: Male

DRUGS (2)
  1. RHEUMATREX [Suspect]
     Active Substance: METHOTREXATE SODIUM
     Dosage: 22.5 MG, WEEKLY
     Route: 065
  2. RHEUMATREX [Suspect]
     Active Substance: METHOTREXATE SODIUM
     Indication: CUTANEOUS T-CELL LYMPHOMA
     Dosage: 15 MG, WEEKLY (INITIAL DOSAGE)
     Route: 065

REACTIONS (1)
  - Epstein-Barr virus associated lymphoma [Recovered/Resolved]
